FAERS Safety Report 9434388 (Version 1)
Quarter: 2013Q3

REPORT INFORMATION
  Report Type: Spontaneous
  Country: FR (occurrence: FR)
  Receive Date: 20130801
  Receipt Date: 20130801
  Transmission Date: 20140515
  Serious: Yes (Hospitalization)
  Sender: FDA-Public Use
  Company Number: FR-JNJFOC-20130715800

PATIENT
  Age: 22 Year
  Sex: Female

DRUGS (5)
  1. REMICADE [Suspect]
     Indication: CROHN^S DISEASE
     Dosage: 10 MG/KG
     Route: 042
     Dates: start: 20130701, end: 20130701
  2. FERINJECT [Suspect]
     Indication: IRON DEFICIENCY ANAEMIA
     Dosage: 10 MG/KG IN 1 HOUR
     Route: 042
     Dates: start: 20130701, end: 20130701
  3. IMUREL [Concomitant]
     Route: 065
  4. BACTRIM [Concomitant]
     Route: 065
  5. DIFFU K [Concomitant]
     Route: 065

REACTIONS (3)
  - Urticaria [Recovering/Resolving]
  - Conjunctivitis [Recovering/Resolving]
  - Hypersensitivity [Recovering/Resolving]
